FAERS Safety Report 9185038 (Version 3)
Quarter: 2013Q2

REPORT INFORMATION
  Report Type: Report from Study
  Country: AT (occurrence: AT)
  Receive Date: 20130325
  Receipt Date: 20130411
  Transmission Date: 20140414
  Serious: Yes (Hospitalization, Disabling, Other)
  Sender: FDA-Public Use
  Company Number: AT-ABBOTT-13P-009-1063628-00

PATIENT
  Age: 67 Year
  Sex: Male
  Weight: 106 kg

DRUGS (25)
  1. ZEMPLAR [Suspect]
     Indication: HYPERPARATHYROIDISM SECONDARY
     Route: 048
     Dates: start: 20111213
  2. NEXIUM [Concomitant]
     Indication: PRODUCT USED FOR UNKNOWN INDICATION
     Dosage: 1-0-0 PER DAY
     Route: 048
     Dates: start: 20111213
  3. THROMBO ASS [Concomitant]
     Indication: PRODUCT USED FOR UNKNOWN INDICATION
     Dosage: 0-1-0 PER DAY
     Route: 048
     Dates: start: 20111213
  4. DILATREND [Concomitant]
     Indication: PRODUCT USED FOR UNKNOWN INDICATION
     Dosage: 0.5-0-0.5 PER DAY
     Route: 048
     Dates: start: 20111213, end: 20120806
  5. NALRIUM BICORBONAT [Concomitant]
     Indication: PRODUCT USED FOR UNKNOWN INDICATION
     Dosage: 2-2-2-2 PER DAY
     Route: 048
     Dates: start: 20111213
  6. CITALOPRAM [Concomitant]
     Indication: PRODUCT USED FOR UNKNOWN INDICATION
     Dosage: 1-0-0 PER DAY
     Route: 048
     Dates: start: 20111213
  7. RENVELA [Concomitant]
     Indication: PRODUCT USED FOR UNKNOWN INDICATION
     Dosage: 0-2-1 PER DAY
     Route: 048
     Dates: start: 20111213
  8. ANTIPHOSPHAT [Concomitant]
     Indication: PRODUCT USED FOR UNKNOWN INDICATION
     Dosage: 1-2-2 PER DAY
     Route: 048
     Dates: start: 20111213, end: 20121222
  9. INSULIN NOVO MIX [Concomitant]
     Indication: PRODUCT USED FOR UNKNOWN INDICATION
     Dosage: FORM: 30IE, DOSE DEPENDS ON BLOOD GLUCOSE
     Route: 058
     Dates: start: 20111213
  10. LASIX [Concomitant]
     Indication: PRODUCT USED FOR UNKNOWN INDICATION
     Dosage: 0.5-0.5-0.5/DAY
     Route: 048
     Dates: start: 20111213
  11. COSAAR [Concomitant]
     Indication: PRODUCT USED FOR UNKNOWN INDICATION
     Dosage: 1-0-1 PER DAY
     Route: 048
     Dates: start: 20111213, end: 20120806
  12. BAYPRESS [Concomitant]
     Indication: PRODUCT USED FOR UNKNOWN INDICATION
     Route: 048
     Dates: start: 20111213, end: 20120222
  13. SORTIS [Concomitant]
     Indication: PRODUCT USED FOR UNKNOWN INDICATION
     Dosage: 0-0-1 PER DAY
     Route: 048
     Dates: start: 20111213, end: 20130108
  14. ARANESP [Concomitant]
     Indication: PRODUCT USED FOR UNKNOWN INDICATION
     Route: 058
     Dates: start: 20111213, end: 20121031
  15. RENVELA [Concomitant]
     Indication: PRODUCT USED FOR UNKNOWN INDICATION
     Dosage: 3-8/DAY
     Route: 048
     Dates: start: 20120222
  16. CIPROXIN [Concomitant]
     Indication: PRODUCT USED FOR UNKNOWN INDICATION
     Dosage: 1-0-1
     Route: 048
     Dates: start: 201207, end: 20120727
  17. PLAVIX [Concomitant]
     Indication: PRODUCT USED FOR UNKNOWN INDICATION
     Dosage: 1-0-0
     Route: 048
     Dates: start: 201207
  18. PANTOLOC [Concomitant]
     Indication: PRODUCT USED FOR UNKNOWN INDICATION
     Dosage: 1-0-0
     Route: 048
     Dates: start: 201207
  19. HYDAL [Concomitant]
     Indication: PRODUCT USED FOR UNKNOWN INDICATION
     Dosage: 2-0-2-0
     Route: 048
     Dates: start: 201207
  20. NABIC [Concomitant]
     Indication: PRODUCT USED FOR UNKNOWN INDICATION
     Dosage: 2-2-2-2
     Route: 048
     Dates: end: 20120806
  21. KALIORAL [Concomitant]
     Indication: PRODUCT USED FOR UNKNOWN INDICATION
     Dosage: 1 SACCHET, EVERY 2 DAYS
     Route: 048
     Dates: start: 20120806
  22. LOVENOX [Concomitant]
     Indication: PRODUCT USED FOR UNKNOWN INDICATION
     Dosage: 1 DAILY
     Route: 058
     Dates: start: 201207
  23. NEURONTIN [Concomitant]
     Indication: PRODUCT USED FOR UNKNOWN INDICATION
     Dosage: 0-0-1
     Route: 048
     Dates: start: 20121031
  24. VENOFER [Concomitant]
     Indication: PRODUCT USED FOR UNKNOWN INDICATION
     Dosage: ON DEMAND
     Route: 042
     Dates: start: 2011, end: 20121031
  25. NORVASC [Concomitant]
     Indication: PRODUCT USED FOR UNKNOWN INDICATION
     Dosage: 1/2 TO 1 TABLET PER DAY
     Route: 048
     Dates: start: 20121127

REACTIONS (6)
  - Sepsis [Recovered/Resolved]
  - Diabetic foot infection [Recovered/Resolved]
  - Toe amputation [Unknown]
  - Venous recanalisation [Unknown]
  - Arterial therapeutic procedure [Unknown]
  - Leg amputation [Unknown]
